FAERS Safety Report 9988157 (Version 2)
Quarter: 2014Q2

REPORT INFORMATION
  Report Type: Spontaneous
  Country: US (occurrence: US)
  Receive Date: 20140309
  Receipt Date: 20140411
  Transmission Date: 20141212
  Serious: No
  Sender: FDA-Public Use
  Company Number: US-009507513-1403USA002989

PATIENT
  Sex: Female

DRUGS (9)
  1. DULERA [Suspect]
     Indication: ASTHMA
     Dosage: TWO PUFFS IN THE MORNING AND TWO PUFFS IN THE EVENING
     Route: 055
     Dates: start: 200503
  2. VAGIFEM [Concomitant]
  3. AVAPRO [Concomitant]
  4. PROAIR (PROCATEROL HYDROCHLORIDE) [Concomitant]
  5. SPIRIVA [Concomitant]
  6. ALENDRONATE SODIUM [Concomitant]
     Route: 048
  7. LORAZEPAM [Concomitant]
  8. CITALOPRAM [Concomitant]
  9. XOLAIR [Concomitant]

REACTIONS (4)
  - Asthma [Unknown]
  - Asthma [Recovering/Resolving]
  - Product quality issue [Unknown]
  - Product quality issue [Unknown]
